FAERS Safety Report 7689518-6 (Version None)
Quarter: 2011Q3

REPORT INFORMATION
  Report Type: 
  Country: None (occurrence: None)
  Receive Date: 20110811
  Receipt Date: 20110805
  Transmission Date: 20111222
  Serious: Yes (Death, Hospitalization)
  Sender: FDA-Public Use
  Company Number: 2009000898

PATIENT
  Age: 71 Year
  Sex: Female

DRUGS (2)
  1. TARCEVA [Suspect]
     Indication: LUNG CARCINOMA CELL TYPE UNSPECIFIED STAGE 0
     Dosage: 150, 100 MG, UID/QD, ORAL
     Route: 048
     Dates: start: 20090209
  2. TARCEVA [Suspect]
     Indication: LUNG CARCINOMA CELL TYPE UNSPECIFIED STAGE 0
     Dosage: 150, 100 MG, UID/QD, ORAL
     Route: 048
     Dates: start: 20090201

REACTIONS (5)
  - EYE IRRITATION [None]
  - DIARRHOEA [None]
  - VOMITING [None]
  - PLEURAL EFFUSION [None]
  - DYSPNOEA [None]
